FAERS Safety Report 16134169 (Version 1)
Quarter: 2019Q1

REPORT INFORMATION
  Report Type: Spontaneous
  Country: RO (occurrence: RO)
  Receive Date: 20190329
  Receipt Date: 20190329
  Transmission Date: 20190418
  Serious: Yes (Hospitalization)
  Sender: FDA-Public Use
  Company Number: RO-ABBVIE-19S-135-2724872-00

PATIENT
  Age: 61 Year
  Sex: Female

DRUGS (3)
  1. VIEKIRAX [Suspect]
     Active Substance: OMBITASVIR\PARITAPREVIR\RITONAVIR
     Indication: CHRONIC HEPATITIS C
     Dosage: 2 TABLETS/DAY
     Route: 048
     Dates: start: 20181123
  2. ATACAND [Concomitant]
     Active Substance: CANDESARTAN CILEXETIL
     Indication: HYPERTENSION
     Route: 048
  3. EXVIERA [Suspect]
     Active Substance: DASABUVIR
     Indication: CHRONIC HEPATITIS C
     Dosage: 2 TABLETS/DAY
     Route: 048
     Dates: start: 20181123

REACTIONS (3)
  - Nausea [Recovered/Resolved]
  - Vomiting [Recovered/Resolved]
  - Memory impairment [Recovered/Resolved]

NARRATIVE: CASE EVENT DATE: 20190115
